FAERS Safety Report 7441337-1 (Version None)
Quarter: 2011Q2

REPORT INFORMATION
  Report Type: 
  Country: None (occurrence: None)
  Receive Date: 20110415
  Receipt Date: 20110404
  Transmission Date: 20111010
  Serious: Yes (Other)
  Sender: FDA-Public Use
  Company Number: TPA2011A00985

PATIENT
  Age: 54 Year
  Sex: Female

DRUGS (5)
  1. PROAIR (ALL OTHER THERAPEUTIC PRODUCTS) [Concomitant]
  2. DEXILANT [Suspect]
     Indication: GASTROOESOPHAGEAL REFLUX DISEASE
     Dosage: 60 MG, 1 IN 1 D, PER ORAL
     Route: 048
     Dates: start: 20101101, end: 20101121
  3. SUCRALFATE [Concomitant]
  4. XYZAL (LEVICETIRIZINE DIHYDROCHLORIDE) [Concomitant]
  5. SINGULAIR [Concomitant]

REACTIONS (3)
  - VAGINAL HAEMORRHAGE [None]
  - RASH [None]
  - BREAST ENLARGEMENT [None]
